FAERS Safety Report 6823985-2 (Version None)
Quarter: 2010Q3

REPORT INFORMATION
  Report Type: 
  Country: None (occurrence: None)
  Receive Date: 20100708
  Receipt Date: 20100618
  Transmission Date: 20110219
  Serious: Yes (Death)
  Sender: FDA-Public Use
  Company Number: PHHY2010AU39305

PATIENT
  Sex: Male

DRUGS (1)
  1. CLOZARIL [Suspect]
     Dosage: 112.5 MG
     Dates: start: 20020720

REACTIONS (2)
  - INFLUENZA [None]
  - LOWER RESPIRATORY TRACT INFECTION [None]
